FAERS Safety Report 6274583-3 (Version None)
Quarter: 2009Q3

REPORT INFORMATION
  Report Type: 
  Country: None (occurrence: None)
  Receive Date: 20090720
  Receipt Date: 20090714
  Transmission Date: 20100115
  Serious: Yes (Other)
  Sender: FDA-Public Use
  Company Number: DE-AVENTIS-200911786DE

PATIENT
  Age: 53 Year
  Sex: Male

DRUGS (2)
  1. LANTUS [Suspect]
     Dates: start: 20080101
  2. APIDRA [Concomitant]
     Dosage: DOSE: NOT REPORTED

REACTIONS (1)
  - BLADDER CANCER [None]
